FAERS Safety Report 15552248 (Version 1)
Quarter: 2020Q3

REPORT INFORMATION
  Report Type: Spontaneous
  Country: SG (occurrence: SG)
  Receive Date: 20181025
  Receipt Date: 20181025
  Transmission Date: 20201104
  Serious: Yes (Other)
  Sender: FDA-Public Use
  Company Number: IND-SG-009507513-1810SGP008860

PATIENT
  Age: 61 Year
  Sex: Female

DRUGS (1)
  1. ARCOXIA [Suspect]
     Active Substance: ETORICOXIB
     Route: 048

REACTIONS (1)
  - Periorbital swelling [Unknown]

NARRATIVE: CASE EVENT DATE: 20180101
